FAERS Safety Report 14651552 (Version 2)
Quarter: 2018Q2

REPORT INFORMATION
  Report Type: Spontaneous
  Country: US (occurrence: US)
  Receive Date: 20180317
  Receipt Date: 20180502
  Transmission Date: 20180711
  Serious: Yes (Life-Threatening, Hospitalization, Other)
  Sender: FDA-Public Use
  Company Number: US-AMGEN-USASP2018033979

PATIENT
  Age: 61 Year
  Sex: Female

DRUGS (1)
  1. PROLIA [Suspect]
     Active Substance: DENOSUMAB
     Indication: OSTEOPOROSIS POSTMENOPAUSAL
     Dosage: 60 MG, Q6MO
     Route: 065

REACTIONS (10)
  - Nasal cavity cancer [Not Recovered/Not Resolved]
  - Nasal polypectomy [Unknown]
  - Sphenopalatine neuralgia [Unknown]
  - Infection [Unknown]
  - Adenoid cystic carcinoma [Not Recovered/Not Resolved]
  - Abscess limb [Unknown]
  - Epistaxis [Not Recovered/Not Resolved]
  - Ileostomy [Not Recovered/Not Resolved]
  - Adrenal gland cancer [Not Recovered/Not Resolved]
  - Adenocarcinoma of salivary gland [Not Recovered/Not Resolved]

NARRATIVE: CASE EVENT DATE: 201101
